FAERS Safety Report 19304015 (Version 3)
Quarter: 2021Q3

REPORT INFORMATION
  Report Type: Spontaneous
  Country: US (occurrence: US)
  Receive Date: 20210525
  Receipt Date: 20210810
  Transmission Date: 20211014
  Serious: Yes (Other)
  Sender: FDA-Public Use
  Company Number: US-MEDEXUS PHARMA, INC.-2021MED00120

PATIENT
  Age: 81 Year
  Sex: Female

DRUGS (12)
  1. MIRTAZAPINE. [Concomitant]
     Active Substance: MIRTAZAPINE
  2. UNSPECIFIED PAIN MEDICATION [Concomitant]
     Active Substance: UNSPECIFIED INGREDIENT
  3. OMEPRAZOLE. [Concomitant]
     Active Substance: OMEPRAZOLE
  4. FLEXERIL [Concomitant]
     Active Substance: CYCLOBENZAPRINE HYDROCHLORIDE
  5. RASUVO [Suspect]
     Active Substance: METHOTREXATE SODIUM
     Dosage: UNK
     Dates: start: 202105
  6. FENTANYL. [Concomitant]
     Active Substance: FENTANYL
  7. OXYCODONE [Concomitant]
     Active Substance: OXYCODONE
  8. FOLIC ACID. [Concomitant]
     Active Substance: FOLIC ACID
  9. RASUVO [Suspect]
     Active Substance: METHOTREXATE SODIUM
     Indication: RHEUMATOID ARTHRITIS
     Dosage: 20 MG, 1X/WEEK EVERY SUNDAY, INJECTED IN THIGH ALTERNATING LEFT AND RIGHT
     Dates: end: 202104
  10. ROSUVASTATIN. [Concomitant]
     Active Substance: ROSUVASTATIN
  11. VITAMIN D [Concomitant]
     Active Substance: VITAMIN D NOS
  12. ALLOPURINOL. [Concomitant]
     Active Substance: ALLOPURINOL

REACTIONS (3)
  - Productive cough [Recovering/Resolving]
  - Lung disorder [Not Recovered/Not Resolved]
  - Immunosuppression [Unknown]

NARRATIVE: CASE EVENT DATE: 2021
